FAERS Safety Report 7622099-1 (Version None)
Quarter: 2011Q3

REPORT INFORMATION
  Report Type: 
  Country: None (occurrence: None)
  Receive Date: 20110720
  Receipt Date: 20110222
  Transmission Date: 20111222
  Serious: Yes (Other)
  Sender: FDA-Public Use
  Company Number: US-BAYER-2011-014221

PATIENT
  Age: 41 Year
  Sex: Male

DRUGS (5)
  1. AVELOX [Suspect]
     Indication: SINUSITIS
     Dosage: 400 MG, QD
     Route: 048
     Dates: start: 20101214, end: 20101214
  2. COUMADIN [Concomitant]
  3. NEXIUM [Concomitant]
  4. PRAVASTATIN [Concomitant]
  5. AVELOX [Suspect]
     Indication: PYREXIA
     Dosage: 400 MG, QD
     Route: 048
     Dates: start: 20110130

REACTIONS (6)
  - ANXIETY [None]
  - ABDOMINAL DISCOMFORT [None]
  - VOMITING [None]
  - HEART RATE INCREASED [None]
  - PALPITATIONS [None]
  - DIARRHOEA [None]
